FAERS Safety Report 10053078 (Version 3)
Quarter: 2014Q3

REPORT INFORMATION
  Report Type: Report from Study
  Country: US (occurrence: US)
  Receive Date: 20140402
  Receipt Date: 20140723
  Transmission Date: 20150326
  Serious: Yes (Hospitalization)
  Sender: FDA-Public Use
  Company Number: PHEH2014US006109

PATIENT
  Age: 42 Year
  Sex: Female

DRUGS (6)
  1. ENALAPRIL [Concomitant]
     Active Substance: ENALAPRIL
     Dosage: 5 MG, BID
     Route: 048
     Dates: start: 20130612
  2. PAROXETINE [Concomitant]
     Active Substance: PAROXETINE\PAROXETINE HYDROCHLORIDE
     Dosage: 40 MG, DAILY
     Route: 048
     Dates: start: 20130612
  3. SLEEP AID [Concomitant]
     Active Substance: DIPHENHYDRAMINE HYDROCHLORIDE\DOXYLAMINE SUCCINATE
     Dosage: 1 DF, QHS
     Route: 048
  4. ALEVE [Concomitant]
     Active Substance: NAPROXEN SODIUM
     Route: 048
  5. IBUPROFEN. [Concomitant]
     Active Substance: IBUPROFEN
     Route: 048
  6. GILENYA [Suspect]
     Active Substance: FINGOLIMOD HYDROCHLORIDE
     Indication: MULTIPLE SCLEROSIS
     Dosage: 0.5 MG, QD
     Route: 048
     Dates: start: 20121018

REACTIONS (22)
  - Alanine aminotransferase increased [Unknown]
  - Fatigue [Unknown]
  - Crying [Unknown]
  - Neutrophil percentage increased [Unknown]
  - Blood bilirubin increased [Unknown]
  - Protein total decreased [Unknown]
  - Blood urea nitrogen/creatinine ratio decreased [Unknown]
  - Mean platelet volume decreased [Unknown]
  - Abdominal pain upper [Unknown]
  - Lymphocyte count decreased [Unknown]
  - Movement disorder [Unknown]
  - Extensor plantar response [Unknown]
  - Blood albumin decreased [Unknown]
  - Gait disturbance [Unknown]
  - Hypertension [Unknown]
  - Cholelithiasis [Unknown]
  - Blood alkaline phosphatase increased [Unknown]
  - Blood glucose increased [Unknown]
  - Nausea [Unknown]
  - Aspartate aminotransferase increased [Unknown]
  - Hyperlipidaemia [Unknown]
  - Low density lipoprotein increased [Unknown]

NARRATIVE: CASE EVENT DATE: 20130317
